FAERS Safety Report 22984256 (Version 2)
Quarter: 2024Q1

REPORT INFORMATION
  Report Type: Report from Study
  Country: US (occurrence: US)
  Receive Date: 20230926
  Receipt Date: 20240109
  Transmission Date: 20240410
  Serious: Yes (Other)
  Sender: FDA-Public Use
  Company Number: US-ABBVIE-4260285

PATIENT
  Age: 59 Year
  Sex: Female

DRUGS (3)
  1. HUMIRA [Suspect]
     Active Substance: ADALIMUMAB
     Indication: Rheumatoid arthritis
     Dosage: CITRATE FREE?- FORM STRENGTH UNITS:40 MILLIGRAM
     Route: 058
     Dates: start: 20220719
  2. HUMIRA [Suspect]
     Active Substance: ADALIMUMAB
     Dosage: CITRATE FREE?FORM STRENGTH UNITS:40 MILLIGRAM
     Route: 058
     Dates: start: 20230105
  3. HUMIRA [Suspect]
     Active Substance: ADALIMUMAB
     Dosage: CITRATE FREE?FORM STRENGTH UNITS:40 MILLIGRAM
     Route: 058

REACTIONS (9)
  - Systemic lupus erythematosus [Unknown]
  - Peripheral swelling [Not Recovered/Not Resolved]
  - Fluid retention [Unknown]
  - Pain [Unknown]
  - Dyspnoea [Not Recovered/Not Resolved]
  - Contusion [Unknown]
  - Osteoarthritis [Unknown]
  - Blister [Unknown]
  - Joint stiffness [Unknown]

NARRATIVE: CASE EVENT DATE: 20230101
